FAERS Safety Report 4532488-X (Version None)
Quarter: 2004Q4

REPORT INFORMATION
  Report Type: 
  Country: None (occurrence: None)
  Receive Date: 20041220
  Receipt Date: 20041210
  Transmission Date: 20050328
  Serious: Yes (Hospitalization)
  Sender: FDA-Public Use
  Company Number: AU-MERCK-0412AUS00058

PATIENT
  Sex: Female

DRUGS (1)
  1. VIOXX [Suspect]
     Route: 065

REACTIONS (2)
  - CARDIAC DISORDER [None]
  - PALPITATIONS [None]
